FAERS Safety Report 6257137-4 (Version None)
Quarter: 2009Q2

REPORT INFORMATION
  Report Type: 
  Country: None (occurrence: None)
  Receive Date: 20090630
  Receipt Date: 20090630
  Transmission Date: 20091009
  Serious: Yes (Hospitalization)
  Sender: FDA-Public Use
  Company Number: None

PATIENT
  Age: 74 Year
  Sex: Male
  Weight: 76.4 kg

DRUGS (9)
  1. TEMODAR [Suspect]
     Indication: GLIOBLASTOMA MULTIFORME
     Dosage: 140MG QD PO
     Route: 048
  2. ZOFRAN [Concomitant]
  3. BACTRIM [Concomitant]
  4. DECADRON [Concomitant]
  5. PRILOSEC [Concomitant]
  6. KEPPRA [Concomitant]
  7. NORVASC [Concomitant]
  8. ZOCOR [Concomitant]
  9. LOPRENOR [Concomitant]

REACTIONS (4)
  - APHASIA [None]
  - HYPERGLYCAEMIA [None]
  - MENTAL STATUS CHANGES [None]
  - TREATMENT NONCOMPLIANCE [None]
